FAERS Safety Report 18949657 (Version 1)
Quarter: 2021Q1

REPORT INFORMATION
  Report Type: Report from Study
  Country: GB (occurrence: GB)
  Receive Date: 20210227
  Receipt Date: 20210227
  Transmission Date: 20210420
  Serious: Yes (Other)
  Sender: FDA-Public Use
  Company Number: NVSC2021GB041428

PATIENT
  Sex: Female

DRUGS (1)
  1. HYRIMOZ [Suspect]
     Active Substance: ADALIMUMAB-ADAZ
     Indication: AXIAL SPONDYLOARTHRITIS
     Dosage: UNK (40MG/0.8ML, FORTNIGHTLY)
     Route: 065

REACTIONS (3)
  - Tuberculosis [Unknown]
  - Back pain [Unknown]
  - Headache [Unknown]
